FAERS Safety Report 9112880 (Version 2)
Quarter: 2013Q1

REPORT INFORMATION
  Report Type: Report from Study
  Country: US (occurrence: US)
  Receive Date: 20130117
  Receipt Date: 20130117
  Transmission Date: 20140127
  Serious: Yes (Other)
  Sender: FDA-Public Use
  Company Number: US-PFIZER INC-2011223821

PATIENT
  Age: 66 Year
  Sex: Female
  Weight: 90.7 kg

DRUGS (9)
  1. LYRICA [Suspect]
     Indication: FIBROMYALGIA
     Dosage: 75 MG, 1X/DAY
     Route: 048
     Dates: start: 20110829, end: 2011
  2. LYRICA [Suspect]
     Dosage: 75 MG, 2X/DAY
     Route: 048
     Dates: start: 2011
  3. LYRICA [Suspect]
     Dosage: 75 MG, 5X/DAY
     Route: 048
     Dates: start: 201106
  4. LYRICA [Suspect]
     Dosage: 75 MG, 3X/DAY
     Route: 048
  5. CRESTOR [Concomitant]
     Dosage: 10 MG, UNK
  6. ATACAND HCT [Concomitant]
     Indication: BLOOD PRESSURE ABNORMAL
     Dosage: 32/12.5MG HALF TABLET A DAY
  7. HYDROCODONE [Concomitant]
     Indication: PAIN
     Dosage: EVERY 46 HOURS
  8. VITAMIN D [Concomitant]
     Dosage: 10000 IU, UNK
  9. EFFEXOR [Concomitant]
     Dosage: 75 MG, UNK

REACTIONS (9)
  - Hallucination [Recovered/Resolved]
  - Bedridden [Recovered/Resolved]
  - Myalgia [Not Recovered/Not Resolved]
  - Oedema peripheral [Not Recovered/Not Resolved]
  - Vomiting [Recovered/Resolved]
  - Diarrhoea [Recovered/Resolved]
  - Dizziness [Not Recovered/Not Resolved]
  - Fatigue [Not Recovered/Not Resolved]
  - Insomnia [Not Recovered/Not Resolved]
